FAERS Safety Report 21108393 (Version 4)
Quarter: 2023Q4

REPORT INFORMATION
  Report Type: Report from Study
  Country: CA (occurrence: CA)
  Receive Date: 20220720
  Receipt Date: 20231115
  Transmission Date: 20240110
  Serious: Yes (Other)
  Sender: FDA-Public Use
  Company Number: CA-JNJFOC-20220714496

PATIENT
  Age: 40 Year
  Sex: Male

DRUGS (2)
  1. TREMFYA [Suspect]
     Active Substance: GUSELKUMAB
     Indication: Psoriasis
     Route: 058
  2. TREMFYA [Suspect]
     Active Substance: GUSELKUMAB
     Route: 058
     Dates: start: 20210625

REACTIONS (6)
  - Hernia [Recovering/Resolving]
  - Syringe issue [Unknown]
  - Psoriasis [Unknown]
  - Injection site swelling [Unknown]
  - Off label use [Unknown]
  - Underdose [Unknown]
